FAERS Safety Report 5664311-4 (Version None)
Quarter: 2008Q1

REPORT INFORMATION
  Report Type: 
  Country: None (occurrence: None)
  Receive Date: 20080314
  Receipt Date: 20080304
  Transmission Date: 20080703
  Serious: Yes (Other)
  Sender: FDA-Public Use
  Company Number: ES-ABBOTT-08P-144-0440903-00

PATIENT
  Age: 36 Year
  Sex: Male

DRUGS (4)
  1. RITONAVIR SOFT GELATIN CAPSULES [Suspect]
     Indication: HIV INFECTION
     Route: 048
     Dates: start: 19990818
  2. STAVUDINE [Concomitant]
     Indication: HIV INFECTION
     Dates: start: 19990818
  3. LAMIVUDINE [Concomitant]
     Indication: HIV INFECTION
     Dates: start: 19990818
  4. INDINIVIR SULFATE [Concomitant]
     Indication: HIV INFECTION
     Dates: start: 19990818

REACTIONS (3)
  - DRUG RESISTANCE [None]
  - FATIGUE [None]
  - STRESS [None]
